FAERS Safety Report 14349754 (Version 2)
Quarter: 2018Q1

REPORT INFORMATION
  Report Type: Spontaneous
  Country: IL (occurrence: IL)
  Receive Date: 20180104
  Receipt Date: 20180122
  Transmission Date: 20180509
  Serious: Yes (Death, Hospitalization, Other)
  Sender: FDA-Public Use
  Company Number: IL-009507513-1801ISR000326

PATIENT
  Age: 58 Year
  Sex: Female
  Weight: 56.96 kg

DRUGS (2)
  1. KEYTRUDA [Suspect]
     Active Substance: PEMBROLIZUMAB
     Indication: ADENOCARCINOMA
  2. KEYTRUDA [Suspect]
     Active Substance: PEMBROLIZUMAB
     Indication: NON-SMALL CELL LUNG CANCER
     Dosage: 200 MG, Q3W
     Route: 042
     Dates: start: 20171114, end: 20171206

REACTIONS (8)
  - Therapy non-responder [Fatal]
  - Vomiting [Fatal]
  - Fatigue [Fatal]
  - Malignant neoplasm progression [Fatal]
  - Dyspnoea [Unknown]
  - Pruritus [Recovered/Resolved]
  - Diarrhoea [Unknown]
  - Nausea [Fatal]

NARRATIVE: CASE EVENT DATE: 2017
